FAERS Safety Report 16663291 (Version 3)
Quarter: 2019Q3

REPORT INFORMATION
  Report Type: Report from Study
  Country: US (occurrence: US)
  Receive Date: 20190802
  Receipt Date: 20190822
  Transmission Date: 20191004
  Serious: Yes (Other)
  Sender: FDA-Public Use
  Company Number: US-BIOGEN-2019BI00763809

PATIENT
  Age: 52 Year
  Sex: Male

DRUGS (7)
  1. ADVIL [Concomitant]
     Active Substance: IBUPROFEN
     Indication: PRODUCT USED FOR UNKNOWN INDICATION
     Route: 065
  2. TECFIDERA [Suspect]
     Active Substance: DIMETHYL FUMARATE
     Dosage: MAINTENANCE DOSE
     Route: 065
     Dates: start: 20190711
  3. TRAZODONE HYDROCHLORIDE. [Concomitant]
     Active Substance: TRAZODONE HYDROCHLORIDE
     Indication: PRODUCT USED FOR UNKNOWN INDICATION
     Route: 065
  4. TECFIDERA [Suspect]
     Active Substance: DIMETHYL FUMARATE
     Indication: MULTIPLE SCLEROSIS
     Dosage: STARTING DOSE
     Route: 065
     Dates: start: 20190704, end: 20190710
  5. CALCIUM [Concomitant]
     Active Substance: CALCIUM
     Indication: PRODUCT USED FOR UNKNOWN INDICATION
     Route: 065
  6. TECFIDERA [Suspect]
     Active Substance: DIMETHYL FUMARATE
     Route: 065
     Dates: start: 20190713
  7. TIZANIDINE HYDROCHLORIDE. [Concomitant]
     Active Substance: TIZANIDINE HYDROCHLORIDE
     Indication: PRODUCT USED FOR UNKNOWN INDICATION
     Route: 065

REACTIONS (12)
  - Dizziness [Not Recovered/Not Resolved]
  - Hot flush [Recovered/Resolved]
  - Feeling abnormal [Unknown]
  - Abdominal pain upper [Recovered/Resolved]
  - Gait disturbance [Unknown]
  - Dry mouth [Recovered/Resolved]
  - Flushing [Recovered/Resolved]
  - Seizure [Recovered/Resolved]
  - Fall [Recovered/Resolved]
  - Contusion [Not Recovered/Not Resolved]
  - Headache [Recovered/Resolved]
  - Face injury [Recovered/Resolved]

NARRATIVE: CASE EVENT DATE: 20190723
